FAERS Safety Report 21091686 (Version 1)
Quarter: 2022Q3

REPORT INFORMATION
  Report Type: Spontaneous
  Country: US (occurrence: US)
  Receive Date: 20220717
  Receipt Date: 20220717
  Transmission Date: 20221027
  Serious: No
  Sender: FDA-Public Use
  Company Number: US-GALDERMA-US2022008243

PATIENT

DRUGS (11)
  1. PROACTIV MD ADAPALENE ACNE TREATMENT [Suspect]
     Active Substance: ADAPALENE
     Indication: Acne
     Dosage: 1 DOSAGE FORM, QD, MORNINGS
     Route: 061
     Dates: start: 202203, end: 202203
  2. Proactiv MD Ultra Gentle Cleanser [Concomitant]
     Indication: Acne
     Dosage: 1 DOSAGE FORM, BID, 2 OR MORE TIMES A DAY
     Route: 061
     Dates: start: 202203, end: 2022
  3. Proactiv MD Ultra Gentle Cleanser [Concomitant]
     Dosage: 1 DOSAGE FORM, BIW, TWO TIMES A WEEK
     Route: 061
     Dates: start: 202203, end: 2022
  4. Proactiv MD Ultra Hydrating Moisturizer [Concomitant]
     Indication: Acne
     Dosage: 1 DOSAGE FORM, BID, 2 OR MORE TIMES A DAY
     Route: 061
     Dates: start: 202203, end: 2022
  5. Proactiv MD Ultra Hydrating Moisturizer [Concomitant]
     Dosage: 1 DOSAGE FORM, BIW, 2 OR MORE TIMES A WEEK
     Route: 061
     Dates: start: 202203, end: 2022
  6. PROACTIV ACNE BODY WASH [Concomitant]
     Active Substance: SALICYLIC ACID
     Indication: Acne
     Dosage: 1 DOSAGE FORM, BID, 2 OR MORE TIMES A DAY
     Dates: start: 202203, end: 2022
  7. PROACTIV ACNE BODY WASH [Concomitant]
     Active Substance: SALICYLIC ACID
     Dosage: 1 DOSAGE FORM, BIW, 2 OR MORE TIMES A WEEK
     Route: 061
     Dates: start: 202203, end: 2022
  8. Proactiv Amazonian Clay Mask [Concomitant]
     Indication: Acne
     Dosage: 1 DOSAGE FORM, BID, 2 OR MORE TIMES A DAY
     Route: 061
     Dates: start: 202203, end: 2022
  9. Proactiv Amazonian Clay Mask [Concomitant]
     Dosage: 1 DOSAGE FORM, BIW, 2 OR MORE TIMES A WEEK
     Route: 061
     Dates: start: 202203, end: 2022
  10. Proactiv Post Acne Scar Gel [Concomitant]
     Indication: Acne
     Dosage: 1 DOSAGE FORM, BID, 2 OR MORE TIMES A DAY
     Route: 061
     Dates: start: 202203, end: 2022
  11. Proactiv Post Acne Scar Gel [Concomitant]
     Dosage: 1 DOSAGE FORM, BIW, 2 OR MORE TIMES A WEEK
     Route: 061
     Dates: start: 202203, end: 2022

REACTIONS (3)
  - Skin exfoliation [Recovered/Resolved]
  - Skin irritation [Recovered/Resolved]
  - Erythema [Recovered/Resolved]

NARRATIVE: CASE EVENT DATE: 20210301
